FAERS Safety Report 4756620-8 (Version None)
Quarter: 2005Q3

REPORT INFORMATION
  Report Type: 
  Country: None (occurrence: None)
  Receive Date: 20050830
  Receipt Date: 20050414
  Transmission Date: 20060218
  Serious: Yes (Other)
  Sender: FDA-Public Use
  Company Number: US-MERCK-0504USA02913

PATIENT
  Age: 69 Year
  Sex: Male
  Weight: 95 kg

DRUGS (3)
  1. VIOXX [Suspect]
     Indication: ARTHRITIS
     Route: 048
     Dates: start: 19990101, end: 20020101
  2. ASPIRIN [Concomitant]
     Indication: OSTEOARTHRITIS
     Route: 065
     Dates: start: 19920101
  3. SAW PALMETTO STANDARDIZED EXTRACT [Concomitant]
     Route: 065
     Dates: start: 19900101

REACTIONS (4)
  - INJURY [None]
  - MYOCARDIAL INFARCTION [None]
  - SLEEP DISORDER [None]
  - STOMACH DISCOMFORT [None]
